FAERS Safety Report 9928086 (Version 2)
Quarter: 2014Q1

REPORT INFORMATION
  Report Type: Spontaneous
  Country: PL (occurrence: None)
  Receive Date: 20140224
  Receipt Date: 20140312
  Transmission Date: 20141002
  Serious: Yes (Hospitalization, Other)
  Sender: FDA-Public Use
  Company Number: VAL_02989_2014

PATIENT
  Age: 26 Year
  Sex: Female

DRUGS (9)
  1. METOPROLOL [Suspect]
     Indication: VENTRICULAR TACHYCARDIA
  2. SOTALOL [Suspect]
     Indication: VENTRICULAR EXTRASYSTOLES
  3. SOTALOL [Suspect]
     Indication: VENTRICULAR TACHYCARDIA
  4. ISOPROTERENOL HYDROCHLORIDE [Suspect]
     Indication: PRODUCT USED FOR UNKNOWN INDICATION
  5. DIAZEPAM [Suspect]
     Indication: SEDATIVE THERAPY
  6. AMIODARONE [Suspect]
     Indication: VENTRICULAR EXTRASYSTOLES
     Dosage: OTHERWISE NOT SPECIFIED
     Route: 042
  7. AMIODARONE [Suspect]
     Indication: VENTRICULAR TACHYCARDIA
     Dosage: OTHERWISE NOT SPECIFIED
     Route: 042
  8. BENZODIAZEPINE [Suspect]
     Indication: POST-TRAUMATIC STRESS DISORDER
  9. MIDANIUM [Suspect]
     Indication: SEDATIVE THERAPY
     Dosage: NOT OTHEWISE SPECIFIED
     Route: 042

REACTIONS (8)
  - Drug ineffective [None]
  - Post-traumatic stress disorder [None]
  - Ventricular tachycardia [None]
  - Ventricular extrasystoles [None]
  - Caesarean section [None]
  - Maternal exposure during pregnancy [None]
  - Sinus tachycardia [None]
  - Premature delivery [None]
